FAERS Safety Report 23606114 (Version 8)
Quarter: 2024Q1

REPORT INFORMATION
  Report Type: Spontaneous
  Country: US (occurrence: US)
  Receive Date: 20240307
  Receipt Date: 20240328
  Transmission Date: 20240410
  Serious: Yes (Hospitalization)
  Sender: FDA-Public Use
  Company Number: US-PFIZER INC-PV202300045460

PATIENT
  Age: 75 Year
  Sex: Female
  Weight: 70.53 kg

DRUGS (2)
  1. BOSULIF [Suspect]
     Active Substance: BOSUTINIB MONOHYDRATE
     Indication: Chronic myeloid leukaemia
     Dosage: 100 MG 2 TABLETS DAILY
     Route: 048
     Dates: start: 20230322
  2. BOSULIF [Suspect]
     Active Substance: BOSUTINIB MONOHYDRATE
     Indication: Breast cancer female

REACTIONS (3)
  - Hepatic cirrhosis [Unknown]
  - Pleural effusion [Unknown]
  - Cardiac failure congestive [Unknown]
